FAERS Safety Report 7631857-9 (Version None)
Quarter: 2011Q3

REPORT INFORMATION
  Report Type: 
  Country: None (occurrence: None)
  Receive Date: 20110725
  Receipt Date: 20110525
  Transmission Date: 20111222
  Serious: No
  Sender: FDA-Public Use
  Company Number: US-BRISTOL-MYERS SQUIBB COMPANY-15680341

PATIENT
  Age: 50 Year
  Sex: Male

DRUGS (1)
  1. COUMADIN [Suspect]
     Dosage: 3MG DOSE AND ON MONDAY,  WEDNESDAY, AND FRIDAY NOW 3.5MG
     Dates: start: 20110117

REACTIONS (2)
  - FATIGUE [None]
  - CONFUSIONAL STATE [None]
